FAERS Safety Report 21216792 (Version 1)
Quarter: 2022Q3

REPORT INFORMATION
  Report Type: Spontaneous
  Country: US (occurrence: US)
  Receive Date: 20220816
  Receipt Date: 20220816
  Transmission Date: 20221027
  Serious: No
  Sender: FDA-Public Use
  Company Number: US-STRIDES ARCOLAB LIMITED-2022SP009923

PATIENT

DRUGS (2)
  1. RANITIDINE [Suspect]
     Active Substance: RANITIDINE
     Indication: Product used for unknown indication
     Dosage: UNK, TABLET
     Route: 065
     Dates: start: 201409
  2. RANITIDINE [Suspect]
     Active Substance: RANITIDINE
     Dosage: UNK, TABLET
     Route: 065
     Dates: start: 201509

REACTIONS (2)
  - Alopecia [Unknown]
  - Illness [Unknown]
